FAERS Safety Report 5023409-4 (Version None)
Quarter: 2006Q2

REPORT INFORMATION
  Report Type: 
  Country: None (occurrence: None)
  Receive Date: 20060612
  Receipt Date: 20060424
  Transmission Date: 20061013
  Serious: Yes (Hospitalization)
  Sender: FDA-Public Use
  Company Number: GB-AVENTIS-200612416EU

PATIENT
  Age: 48 Year
  Sex: Male

DRUGS (4)
  1. CLEXANE [Suspect]
     Indication: PROPHYLAXIS
     Route: 058
     Dates: start: 20060105, end: 20060116
  2. PARACETAMOL [Concomitant]
     Dates: start: 20060105, end: 20060116
  3. IBUPROFEN [Concomitant]
     Dates: start: 20060105, end: 20060116
  4. OXYCONTIN [Concomitant]
     Dates: start: 20060105, end: 20060116

REACTIONS (5)
  - CONTUSION [None]
  - HAEMORRHAGE [None]
  - PAIN [None]
  - SWELLING [None]
  - WOUND SECRETION [None]
